FAERS Safety Report 12573373 (Version 1)
Quarter: 2016Q3

REPORT INFORMATION
  Report Type: Spontaneous
  Country: US (occurrence: None)
  Receive Date: 20160719
  Receipt Date: 20160719
  Transmission Date: 20161109
  Serious: Yes (Disabling)
  Sender: FDA-Public Use
  Company Number: None

PATIENT
  Age: 60 Year
  Sex: Male
  Weight: 99.79 kg

DRUGS (3)
  1. ASPIRIN. [Concomitant]
     Active Substance: ASPIRIN
  2. CIRPOFLOXACIN, 500 MG COBALT [Suspect]
     Active Substance: CIPROFLOXACIN
     Indication: DIVERTICULITIS
     Route: 048
     Dates: start: 20150910, end: 20150917
  3. ADVIL [Concomitant]
     Active Substance: IBUPROFEN

REACTIONS (7)
  - Diverticulitis [None]
  - Anxiety [None]
  - Abscess [None]
  - Musculoskeletal pain [None]
  - Pain in extremity [None]
  - Hypoaesthesia [None]
  - Diarrhoea [None]

NARRATIVE: CASE EVENT DATE: 20150917
